FAERS Safety Report 8367485-X (Version None)
Quarter: 2012Q2

REPORT INFORMATION
  Report Type: 
  Country: None (occurrence: None)
  Receive Date: 20120517
  Receipt Date: 20120308
  Transmission Date: 20120825
  Serious: No
  Sender: FDA-Public Use
  Company Number: US-GLAXOSMITHKLINE-A0969723A

PATIENT
  Age: 82 Year
  Sex: Male
  Weight: 72.7 kg

DRUGS (11)
  1. ALBUTEROL [Concomitant]
     Route: 055
  2. VOTRIENT [Suspect]
     Indication: PRODUCT USED FOR UNKNOWN INDICATION
     Dosage: 600MG PER DAY
     Route: 048
  3. ASCORBIC ACID [Concomitant]
     Route: 048
  4. OMEPRAZOLE [Concomitant]
     Route: 048
  5. SERTRALINE HYDROCHLORIDE [Concomitant]
     Route: 048
  6. SIMVASTATIN [Concomitant]
     Route: 048
  7. ADVAIR DISKUS 100/50 [Concomitant]
     Route: 055
  8. FINASTERIDE [Concomitant]
     Route: 048
  9. SYNTHROID [Concomitant]
     Route: 048
  10. MIRALAX [Concomitant]
     Route: 048
  11. FLOMAX [Concomitant]
     Route: 048

REACTIONS (3)
  - INNER EAR DISORDER [None]
  - SINUS DISORDER [None]
  - DYSACUSIS [None]
